FAERS Safety Report 9188629 (Version 1)
Quarter: 2013Q1

REPORT INFORMATION
  Report Type: Spontaneous
  Country: IT (occurrence: IT)
  Receive Date: 20130325
  Receipt Date: 20130325
  Transmission Date: 20140127
  Serious: Yes (Hospitalization)
  Sender: FDA-Public Use
  Company Number: PHHY2013IT027515

PATIENT
  Age: 48 Year
  Sex: Female

DRUGS (2)
  1. CITALOPRAM [Suspect]
     Indication: INSOMNIA
     Dosage: 120 MG, TOTAL
     Route: 048
     Dates: start: 20121220, end: 20121220
  2. RIVOTRIL [Suspect]
     Indication: INSOMNIA
     Dosage: 10 ML, TOTAL
     Route: 048
     Dates: start: 20121220, end: 20121220

REACTIONS (3)
  - Bradyphrenia [Recovered/Resolved]
  - Bradykinesia [Recovered/Resolved]
  - Somnolence [Recovered/Resolved]
